FAERS Safety Report 4994502-7 (Version None)
Quarter: 2006Q2

REPORT INFORMATION
  Report Type: 
  Country: None (occurrence: None)
  Receive Date: 20060505
  Receipt Date: 20050617
  Transmission Date: 20061013
  Serious: Yes (Hospitalization, Disabling)
  Sender: FDA-Public Use
  Company Number: US-MERCK-0506USA02806

PATIENT
  Age: 42 Year
  Sex: Female
  Weight: 113 kg

DRUGS (13)
  1. VIOXX [Suspect]
     Indication: RHEUMATOID ARTHRITIS
     Route: 048
     Dates: start: 20000101, end: 20020101
  2. VIOXX [Suspect]
     Indication: PAIN
     Route: 048
     Dates: start: 20000101, end: 20020101
  3. ZOLOFT [Concomitant]
     Route: 065
     Dates: start: 20000322
  4. WELLBUTRIN [Concomitant]
     Route: 065
     Dates: start: 20000322
  5. ATENOLOL [Concomitant]
     Route: 065
     Dates: start: 20010319
  6. AMITRIPTYLIN [Concomitant]
     Route: 065
     Dates: start: 20000322
  7. NAPROSYN [Concomitant]
     Route: 065
     Dates: start: 20000101
  8. CELEBREX [Concomitant]
     Route: 065
     Dates: start: 20000101
  9. IBUPROFEN [Concomitant]
     Route: 065
     Dates: start: 20000101
  10. SKELAXIN [Concomitant]
     Route: 065
     Dates: start: 20000101
  11. CYCLOBENZAPRINE HYDROCHLORIDE [Concomitant]
     Route: 065
     Dates: start: 20000101
  12. LEXAPRO [Concomitant]
     Route: 065
     Dates: start: 20000322
  13. PAXIL [Concomitant]
     Route: 065
     Dates: start: 20000322

REACTIONS (4)
  - ANXIETY [None]
  - CEREBROVASCULAR ACCIDENT [None]
  - CHEST PAIN [None]
  - DEPRESSION [None]
